FAERS Safety Report 5271039-1 (Version None)
Quarter: 2007Q1

REPORT INFORMATION
  Report Type: 
  Country: None (occurrence: None)
  Receive Date: 20070315
  Receipt Date: 20070302
  Transmission Date: 20070707
  Serious: Yes (Hospitalization)
  Sender: FDA-Public Use
  Company Number: 2007RR-06171

PATIENT
  Age: 54 Year
  Sex: Male

DRUGS (9)
  1. ASPIRIN [Suspect]
     Indication: HIP ARTHROPLASTY
     Dosage: 300 MG,QD, ORAL
     Route: 048
     Dates: start: 20070205, end: 20070213
  2. DICLOFENAC SODIUM [Suspect]
     Indication: ARTHRALGIA
     Dosage: 50 MG, TID
     Dates: end: 20070205
  3. AMITRIPTYLINE HCL [Concomitant]
  4. CEFALEXIN (CEPHALEXIN) [Concomitant]
  5. CO-DYDRAMOL ORAL (DIHYDCOCODEINE, ACETAMINOPHEN/PARACETAMOL) [Concomitant]
  6. GLICLAZIDE (GLICLAZIDE) [Concomitant]
  7. METFORMIN HYDROCHLORIDE (METFORMIN) [Concomitant]
  8. SIMVASTATIN [Concomitant]
  9. TRAMADOL HYDROCHLORIDE (TRAMADOL) [Concomitant]

REACTIONS (1)
  - GASTROINTESTINAL HAEMORRHAGE [None]
